FAERS Safety Report 15569702 (Version 3)
Quarter: 2019Q1

REPORT INFORMATION
  Report Type: Spontaneous
  Country: US (occurrence: US)
  Receive Date: 20181031
  Receipt Date: 20190315
  Transmission Date: 20190417
  Serious: No
  Sender: FDA-Public Use
  Company Number: US-PFIZER INC-2018443438

PATIENT
  Age: 47 Year
  Sex: Female

DRUGS (5)
  1. EUCRISA [Suspect]
     Active Substance: CRISABOROLE
     Indication: DERMATITIS
  2. CRISABOROLE [Suspect]
     Active Substance: CRISABOROLE
     Indication: ECZEMA
     Dosage: UNK
     Route: 061
  3. CRISABOROLE [Suspect]
     Active Substance: CRISABOROLE
     Indication: PRURITUS
  4. CRISABOROLE [Suspect]
     Active Substance: CRISABOROLE
     Indication: DRY SKIN
  5. EUCRISA [Suspect]
     Active Substance: CRISABOROLE
     Indication: ECZEMA
     Dosage: ONCE TO TWICE DAILY WITH MOISTURIZER
     Route: 061
     Dates: start: 201712, end: 201801

REACTIONS (3)
  - Application site pain [Unknown]
  - Drug ineffective [Unknown]
  - Skin burning sensation [Recovered/Resolved]
